FAERS Safety Report 9914010 (Version 2)
Quarter: 2014Q1

REPORT INFORMATION
  Report Type: Report from Study
  Country: AT (occurrence: AT)
  Receive Date: 20140220
  Receipt Date: 20140220
  Transmission Date: 20141002
  Serious: Yes (Hospitalization, Disabling, Other)
  Sender: FDA-Public Use
  Company Number: AT-ABBVIE-09P-009-0584203-00

PATIENT
  Age: 42 Year
  Sex: Female
  Weight: 61 kg

DRUGS (5)
  1. HUMIRA [Suspect]
     Indication: CROHN^S DISEASE
     Route: 058
     Dates: start: 20080321, end: 20091204
  2. FERROUS SULFATE [Concomitant]
     Indication: SERUM FERRITIN DECREASED
     Dates: start: 200712
  3. CALCIUM D3 [Concomitant]
     Indication: OSTEOPENIA
     Dates: start: 200612
  4. QUANTALAN [Concomitant]
     Indication: DIARRHOEA
     Dates: start: 20090709
  5. APREDNISLON [Concomitant]
     Indication: CROHN^S DISEASE
     Dosage: 50 MG TO REDUCE 10 MG EVERY WEEK
     Dates: start: 20091010, end: 201012

REACTIONS (2)
  - Thyroid neoplasm [Recovered/Resolved]
  - Papillary thyroid cancer [Recovered/Resolved]
